FAERS Safety Report 9064111 (Version 1)
Quarter: 2013Q1

REPORT INFORMATION
  Report Type: Spontaneous
  Country: US (occurrence: US)
  Receive Date: 20130213
  Receipt Date: 20130213
  Transmission Date: 20140127
  Serious: No
  Sender: FDA-Public Use
  Company Number: US-BAYER-2013-018628

PATIENT
  Age: 26 Year
  Sex: Female

DRUGS (1)
  1. GADAVIST [Suspect]
     Indication: NUCLEAR MAGNETIC RESONANCE IMAGING
     Dosage: 10 MG, ONCE
     Route: 042
     Dates: start: 20130211, end: 20130211

REACTIONS (4)
  - Nausea [None]
  - Vomiting [None]
  - Erythema [None]
  - Pruritus [None]
